FAERS Safety Report 5331653-1 (Version None)
Quarter: 2007Q2

REPORT INFORMATION
  Report Type: 
  Country: None (occurrence: None)
  Receive Date: 20070516
  Receipt Date: 20070509
  Transmission Date: 20071010
  Serious: Yes (Disabling)
  Sender: FDA-Public Use
  Company Number: 200611IM000646

PATIENT
  Age: 52 Year
  Sex: Male
  Weight: 89.3586 kg

DRUGS (9)
  1. INTERFERON GAMMA-1B [Suspect]
     Indication: IDIOPATHIC PULMONARY FIBROSIS
     Dosage: 200 UG, QOD, SUBCUTANEOUS
     Route: 058
     Dates: start: 20031111, end: 20061103
  2. PARACETAMOL [Concomitant]
  3. TRICOR [Concomitant]
  4. VYTORIN [Concomitant]
  5. ALLOPURINOL [Concomitant]
  6. PLAVIX [Concomitant]
  7. EFFEXOR XR [Concomitant]
  8. ALBUTEROL [Concomitant]
  9. AVANDARYL [Concomitant]

REACTIONS (4)
  - GAIT DISTURBANCE [None]
  - PAIN IN EXTREMITY [None]
  - PERIPHERAL COLDNESS [None]
  - SENSORY LOSS [None]
